FAERS Safety Report 5471327-X (Version None)
Quarter: 2007Q3

REPORT INFORMATION
  Report Type: 
  Country: None (occurrence: None)
  Receive Date: 20070928
  Receipt Date: 20060810
  Transmission Date: 20080115
  Serious: No
  Sender: FDA-Public Use
  Company Number: US-BRISTOL-MYERS SQUIBB COMPANY-13471677

PATIENT
  Sex: Female

DRUGS (5)
  1. DEFINITY [Suspect]
     Indication: STRESS ECHOCARDIOGRAM
     Route: 042
     Dates: start: 20060810, end: 20060810
  2. BENADRYL [Concomitant]
     Indication: HYPERSENSITIVITY
     Route: 042
     Dates: start: 20060810, end: 20060810
  3. DECADRON [Concomitant]
     Indication: HYPERSENSITIVITY
     Route: 042
     Dates: start: 20060810, end: 20060810
  4. NORVASC [Concomitant]
  5. LOPRESSOR [Concomitant]

REACTIONS (2)
  - PRURITUS [None]
  - RASH [None]
